FAERS Safety Report 21310755 (Version 3)
Quarter: 2022Q4

REPORT INFORMATION
  Report Type: Other
  Country: US (occurrence: None)
  Receive Date: 20220909
  Receipt Date: 20221109
  Transmission Date: 20230113
  Serious: Yes (Other)
  Sender: FDA-Public Use
  Company Number: US-ROCHE-3173181

PATIENT
  Age: 82 Year
  Sex: Female

DRUGS (2)
  1. ERIVEDGE [Suspect]
     Active Substance: VISMODEGIB
     Indication: Basal cell carcinoma
     Route: 048
  2. TAMIFLU [Suspect]
     Active Substance: OSELTAMIVIR PHOSPHATE
     Indication: Product used for unknown indication
     Dosage: 12 MG/ML
     Route: 065

REACTIONS (4)
  - Nasal cavity cancer [Unknown]
  - Hypoacusis [Unknown]
  - Neoplasm malignant [Unknown]
  - Drug hypersensitivity [Unknown]
